FAERS Safety Report 9747530 (Version 3)
Quarter: 2014Q4

REPORT INFORMATION
  Report Type: Spontaneous
  Country: DE (occurrence: DE)
  Receive Date: 20131212
  Receipt Date: 20141024
  Transmission Date: 20150529
  Serious: Yes (Other)
  Sender: FDA-Public Use
  Company Number: DE-AMGEN-DEUSP2013086313

PATIENT
  Age: 25 Year
  Sex: Male
  Weight: 74 kg

DRUGS (4)
  1. CEFUROXIM                          /00454602/ [Concomitant]
     Active Substance: CEFUROXIME
     Dosage: UNK UNK, BID
     Dates: start: 20131209, end: 20131215
  2. FOLICOMBIN [Concomitant]
     Dosage: UNK UNK, BID
     Dates: start: 20131107
  3. FERRO SANOL [Concomitant]
     Active Substance: FERROUS SULFATE\GLYCINE
     Dosage: UNK
     Dates: start: 20131211
  4. NPLATE [Suspect]
     Active Substance: ROMIPLOSTIM
     Indication: THROMBOCYTOPENIA
     Dosage: 750 MCG,EVERY 6 DAYS
     Route: 030
     Dates: start: 201004

REACTIONS (5)
  - Mental disorder [Unknown]
  - Incorrect route of drug administration [Unknown]
  - Myelofibrosis [Not Recovered/Not Resolved]
  - Limb operation [Unknown]
  - Drug effect decreased [Unknown]

NARRATIVE: CASE EVENT DATE: 201208
